FAERS Safety Report 9983206 (Version 1)
Quarter: 2014Q1

REPORT INFORMATION
  Report Type: Spontaneous
  Country: US (occurrence: US)
  Receive Date: 20140307
  Receipt Date: 20140307
  Transmission Date: 20141002
  Serious: Yes (Other)
  Sender: FDA-Public Use
  Company Number: US-PFIZER INC-2014063775

PATIENT
  Age: 47 Year
  Sex: Female

DRUGS (18)
  1. XANAX [Suspect]
     Dosage: UNK
  2. REQUIP [Suspect]
     Indication: RESTLESS LEGS SYNDROME
     Dosage: 4 MG VARIABLE DOSING
     Route: 048
     Dates: start: 2013
  3. REQUIP [Suspect]
     Dosage: 4 MG, 1X/DAY
     Route: 048
  4. REQUIP XL [Suspect]
     Indication: RESTLESS LEGS SYNDROME
     Dosage: UNK
     Route: 048
     Dates: start: 2008
  5. REQUIP XL [Suspect]
     Dosage: 2 MG, ONCE A NIGHT
     Route: 048
     Dates: start: 201402
  6. REQUIP XL [Suspect]
     Dosage: 4 MG, DAILY
     Route: 048
  7. REQUIP XL [Suspect]
     Dosage: 4 MG, UNK
     Route: 048
  8. PAXIL [Concomitant]
     Dosage: UNK
  9. BUSPAR [Concomitant]
     Dosage: UNK
  10. DICYCLOMINE HYDROCHLORIDE [Concomitant]
     Dosage: UNK
  11. PHENERGAN [Concomitant]
     Dosage: UNK
  12. PROTONIX [Concomitant]
     Dosage: UNK
  13. PROBIOTICS [Concomitant]
     Dosage: UNK
  14. COLACE [Concomitant]
     Dosage: UNK
  15. LINZESS [Concomitant]
     Dosage: UNK
  16. DEXILANT [Concomitant]
     Dosage: UNK
  17. ZANTAC [Concomitant]
     Dosage: UNK
  18. BENADRYL [Concomitant]
     Dosage: UNK

REACTIONS (12)
  - Drug withdrawal syndrome [Recovered/Resolved]
  - Grand mal convulsion [Recovered/Resolved]
  - Psychogenic seizure [Recovered/Resolved]
  - Muscle spasms [Not Recovered/Not Resolved]
  - Pain in extremity [Unknown]
  - Insomnia [Not Recovered/Not Resolved]
  - Muscle twitching [Unknown]
  - Dyskinesia [Unknown]
  - Treatment noncompliance [Unknown]
  - Overdose [Unknown]
  - Incorrect dose administered [Unknown]
  - Drug ineffective [Not Recovered/Not Resolved]
